FAERS Safety Report 18090192 (Version 3)
Quarter: 2020Q4

REPORT INFORMATION
  Report Type: Report from Study
  Country: ZA (occurrence: ZA)
  Receive Date: 20200729
  Receipt Date: 20201116
  Transmission Date: 20210113
  Serious: Yes (Hospitalization)
  Sender: FDA-Public Use
  Company Number: NVSC2020ZA189251

PATIENT
  Sex: Male

DRUGS (3)
  1. COSENTYX [Suspect]
     Active Substance: SECUKINUMAB
     Indication: PSORIATIC ARTHROPATHY
     Dosage: 150 MG, QMO
     Route: 058
     Dates: start: 20200629
  2. COSENTYX [Suspect]
     Active Substance: SECUKINUMAB
     Dosage: UNK UNK,
     Route: 065
     Dates: start: 20200817
  3. COSENTYX [Suspect]
     Active Substance: SECUKINUMAB
     Dosage: 150 MG, QMO
     Route: 058

REACTIONS (10)
  - Rales [Unknown]
  - Cardiac disorder [Unknown]
  - Dysarthria [Unknown]
  - Inflammation [Unknown]
  - Rhinorrhoea [Unknown]
  - Psoriasis [Unknown]
  - Manufacturing product shipping issue [Unknown]
  - Product dose omission issue [Unknown]
  - Pain [Unknown]
  - Incorrect dose administered [Unknown]
